FAERS Safety Report 24337766 (Version 1)
Quarter: 2024Q3

REPORT INFORMATION
  Report Type: Spontaneous
  Country: US (occurrence: US)
  Receive Date: 20240919
  Receipt Date: 20240919
  Transmission Date: 20241017
  Serious: No
  Sender: BRISTOL MYERS SQUIBB
  Company Number: US-BRISTOL-MYERS SQUIBB COMPANY-2024-148053

PATIENT
  Age: 61 Year
  Sex: Female

DRUGS (1)
  1. ORENCIA [Suspect]
     Active Substance: ABATACEPT
     Indication: Rheumatoid arthritis
     Route: 058
     Dates: start: 202209

REACTIONS (6)
  - White blood cell count increased [Unknown]
  - Joint swelling [Unknown]
  - Arthralgia [Unknown]
  - Pain in extremity [Unknown]
  - COVID-19 [Unknown]
  - Infection [Unknown]

NARRATIVE: CASE EVENT DATE: 20240701
